FAERS Safety Report 20696697 (Version 1)
Quarter: 2022Q2

REPORT INFORMATION
  Report Type: Spontaneous
  Country: None (occurrence: US)
  Receive Date: 20220411
  Receipt Date: 20220411
  Transmission Date: 20220721
  Serious: Yes (Other)
  Sender: FDA-Public Use
  Company Number: US-Breckenridge Pharmaceutical, Inc.-2127583

PATIENT
  Sex: Female

DRUGS (1)
  1. OXCARBAZEPINE [Suspect]
     Active Substance: OXCARBAZEPINE
     Indication: Affective disorder
     Route: 048

REACTIONS (1)
  - Dystonia [Unknown]
